FAERS Safety Report 22279664 (Version 1)
Quarter: 2023Q2

REPORT INFORMATION
  Report Type: Report from Study
  Country: DE (occurrence: DE)
  Receive Date: 20230503
  Receipt Date: 20230503
  Transmission Date: 20230721
  Serious: Yes (Hospitalization, Other)
  Sender: FDA-Public Use
  Company Number: DE-002147023-NVSC2023DE095995

PATIENT
  Age: 76 Year
  Sex: Male

DRUGS (1)
  1. ERELZI [Suspect]
     Active Substance: ETANERCEPT-SZZS
     Indication: Rheumatoid arthritis
     Dosage: 50 MG
     Route: 065
     Dates: start: 201710, end: 201804

REACTIONS (4)
  - Basal cell carcinoma [Unknown]
  - Squamous cell carcinoma [Unknown]
  - Cataract [Unknown]
  - COVID-19 [Unknown]

NARRATIVE: CASE EVENT DATE: 20220325
